FAERS Safety Report 14804825 (Version 1)
Quarter: 2018Q1

REPORT INFORMATION
  Report Type: Spontaneous
  Country: US (occurrence: US)
  Receive Date: 20180324
  Receipt Date: 20180324
  Transmission Date: 20180509
  Serious: Yes (Life-Threatening, Hospitalization, Other)
  Sender: FDA-Public Use
  Company Number: None

PATIENT
  Age: 48 Year
  Sex: Male
  Weight: 112.5 kg

DRUGS (1)
  1. ALKA-SELTZER PLUS MAXIMUM STRENGTH NIGHT COLD AND FLU [Suspect]
     Active Substance: ACETAMINOPHEN\DEXTROMETHORPHAN HYDROBROMIDE\DOXYLAMINE SUCCINATE\PHENYLEPHRINE HYDROCHLORIDE
     Indication: NASOPHARYNGITIS
     Dosage: 2 LIQUID GELS; AS DIRECTED; ORAL?
     Route: 048
     Dates: start: 20180302, end: 20180308

REACTIONS (3)
  - Hypertension [None]
  - Anaphylactic reaction [None]
  - Dizziness [None]

NARRATIVE: CASE EVENT DATE: 20180308
